FAERS Safety Report 8484598-2 (Version None)
Quarter: 2012Q3

REPORT INFORMATION
  Report Type: 
  Country: None (occurrence: None)
  Receive Date: 20120703
  Receipt Date: 20120622
  Transmission Date: 20120928
  Serious: Yes (Hospitalization)
  Sender: FDA-Public Use
  Company Number: FR-SANOFI-AVENTIS-2012SA044894

PATIENT
  Age: 38 Year
  Sex: Female

DRUGS (2)
  1. ARAVA [Suspect]
     Route: 065
     Dates: start: 20080901
  2. HUMIRA [Suspect]
     Route: 065
     Dates: start: 20090801

REACTIONS (2)
  - CEREBRAL ARTERITIS [None]
  - SUBARACHNOID HAEMORRHAGE [None]
